FAERS Safety Report 5020423-X (Version None)
Quarter: 2006Q2

REPORT INFORMATION
  Report Type: 
  Country: None (occurrence: None)
  Receive Date: 20060601
  Receipt Date: 20060517
  Transmission Date: 20061013
  Serious: Yes (Death)
  Sender: FDA-Public Use
  Company Number: CHF-20060100

PATIENT
  Age: 1 Day
  Sex: Male

DRUGS (8)
  1. CUROSURF [Suspect]
     Dosage: MG                        INTRATRACHEAL
     Route: 039
     Dates: start: 20060331, end: 20060331
  2. CUROSURF [Suspect]
     Dosage: MG                        INTRATRACHEAL
     Route: 039
     Dates: start: 20060401, end: 20060401
  3. CUROSURF [Suspect]
     Dosage: MG                        INTRATRACHEAL
     Route: 039
     Dates: start: 20060402, end: 20060402
  4. PENICILLIN G [Concomitant]
  5. GENTAMICIN SULFATE [Concomitant]
  6. DOPMIN DOPAMINE HYDROCHLORIDE [Concomitant]
  7. ADRENALIN ADRENALINE OXYCODONE HYDROCHLORIDE [Concomitant]
  8. MIDAZOLAM HCL [Concomitant]

REACTIONS (9)
  - CEREBRAL HAEMORRHAGE NEONATAL [None]
  - ILL-DEFINED DISORDER [None]
  - INFECTION [None]
  - LUNG DISORDER [None]
  - NEONATAL PNEUMONIA [None]
  - NEONATAL RESPIRATORY DISTRESS SYNDROME [None]
  - NO THERAPEUTIC RESPONSE [None]
  - PULMONARY HAEMORRHAGE [None]
  - RENAL IMPAIRMENT NEONATAL [None]
